FAERS Safety Report 7621069-7 (Version None)
Quarter: 2011Q3

REPORT INFORMATION
  Report Type: 
  Country: None (occurrence: None)
  Receive Date: 20110719
  Receipt Date: 20100913
  Transmission Date: 20111222
  Serious: No
  Sender: FDA-Public Use
  Company Number: US-KINGPHARMUSA00001-K200901109

PATIENT
  Sex: Male
  Weight: 111.11 kg

DRUGS (6)
  1. LEVOXYL [Suspect]
     Dosage: 100 MCG, QD
     Route: 048
     Dates: start: 20100101, end: 20100801
  2. LEVOXYL [Suspect]
     Indication: HYPOTHYROIDISM
     Dosage: 50 MCG, QD
     Route: 048
     Dates: start: 20090501, end: 20090101
  3. LEVOXYL [Suspect]
     Dosage: 75 MCG, QD
     Route: 048
     Dates: start: 20090101, end: 20090101
  4. LEVOXYL [Suspect]
     Dosage: 150 MCG, QAM
     Route: 048
     Dates: start: 20100801
  5. ANTIPSORIATICS FOR TOPICAL USE [Suspect]
     Indication: PSORIASIS
     Dosage: UNK
     Route: 061
  6. LEVOXYL [Suspect]
     Dosage: 150 MCG, QD
     Route: 048
     Dates: start: 20090101, end: 20100101

REACTIONS (6)
  - ALOPECIA [None]
  - WEIGHT INCREASED [None]
  - CONDITION AGGRAVATED [None]
  - DRY SKIN [None]
  - DRUG INEFFECTIVE [None]
  - BLOOD THYROID STIMULATING HORMONE ABNORMAL [None]
